FAERS Safety Report 16742794 (Version 1)
Quarter: 2019Q3

REPORT INFORMATION
  Report Type: Spontaneous
  Country: US (occurrence: US)
  Receive Date: 20190826
  Receipt Date: 20190826
  Transmission Date: 20191005
  Serious: No
  Sender: FDA-Public Use
  Company Number: US-JIANGSU HENGRUI MEDICINE CO., LTD.-2073687

PATIENT

DRUGS (12)
  1. GEMCITABINE. [Suspect]
     Active Substance: GEMCITABINE
  2. VINCRISTINE SULFATE. [Suspect]
     Active Substance: VINCRISTINE SULFATE
  3. ETOPOSIDE. [Suspect]
     Active Substance: ETOPOSIDE
  4. DEXAMETHASONE. [Suspect]
     Active Substance: DEXAMETHASONE
  5. RITUXIMAB. [Suspect]
     Active Substance: RITUXIMAB
  6. IFOSFAMIDE. [Suspect]
     Active Substance: IFOSFAMIDE
  7. PREDNISONE. [Suspect]
     Active Substance: PREDNISONE
  8. CARBOPLATIN. [Suspect]
     Active Substance: CARBOPLATIN
  9. CISPLATIN. [Suspect]
     Active Substance: CISPLATIN
  10. CYCLOPHOSPHAMIDE FOR INJECTION USP, 500 MG, 1 G AND 2 G PER SINGLE-DOS [Suspect]
     Active Substance: CYCLOPHOSPHAMIDE
     Indication: DIFFUSE LARGE B-CELL LYMPHOMA
  11. CYCLOPHOSPHAMIDE. [Suspect]
     Active Substance: CYCLOPHOSPHAMIDE
  12. DOXORUBICIN HYDROCHLORIDE. [Suspect]
     Active Substance: DOXORUBICIN HYDROCHLORIDE

REACTIONS (2)
  - Skin mass [Unknown]
  - Therapeutic product effect decreased [Unknown]
